FAERS Safety Report 12358393 (Version 5)
Quarter: 2022Q2

REPORT INFORMATION
  Report Type: Spontaneous
  Country: US (occurrence: US)
  Receive Date: 20160512
  Receipt Date: 20220421
  Transmission Date: 20220721
  Serious: No
  Sender: FDA-Public Use
  Company Number: US-PFIZER INC-2016224561

PATIENT
  Age: 80 Year
  Sex: Female

DRUGS (21)
  1. LIPITOR [Suspect]
     Active Substance: ATORVASTATIN CALCIUM
     Dosage: UNK
  2. CORTISONE [Suspect]
     Active Substance: CORTISONE
     Dosage: UNK
  3. MEPERIDINE HYDROCHLORIDE [Suspect]
     Active Substance: MEPERIDINE HYDROCHLORIDE
     Dosage: UNK
  4. MENTHOL [Suspect]
     Active Substance: MENTHOL
     Dosage: UNK
  5. TRAMADOL [Suspect]
     Active Substance: TRAMADOL
     Dosage: UNK
  6. IODINE [Suspect]
     Active Substance: IODINE
     Dosage: UNK
  7. VALIUM [Suspect]
     Active Substance: DIAZEPAM
     Dosage: UNK
  8. ULTRACET [Suspect]
     Active Substance: ACETAMINOPHEN\TRAMADOL HYDROCHLORIDE
     Dosage: UNK
  9. PAROXETINE [Suspect]
     Active Substance: PAROXETINE
     Dosage: UNK
  10. VICODIN [Suspect]
     Active Substance: ACETAMINOPHEN\HYDROCODONE BITARTRATE
     Dosage: UNK
  11. SULINDAC [Suspect]
     Active Substance: SULINDAC
     Dosage: UNK
  12. TRICOR [Suspect]
     Active Substance: FENOFIBRATE
     Dosage: UNK
  13. VALSARTAN [Suspect]
     Active Substance: VALSARTAN
     Dosage: UNK
  14. PREDNISOLONE [Suspect]
     Active Substance: PREDNISOLONE
     Dosage: UNK
  15. DIOVAN [Suspect]
     Active Substance: VALSARTAN
     Dosage: UNK
  16. FENOFIBRATE [Suspect]
     Active Substance: FENOFIBRATE
     Dosage: UNK
  17. LISINOPRIL [Suspect]
     Active Substance: LISINOPRIL
     Dosage: UNK
  18. PAXIL [Suspect]
     Active Substance: PAROXETINE HYDROCHLORIDE
     Dosage: UNK
  19. ZETIA [Suspect]
     Active Substance: EZETIMIBE
     Dosage: UNK
  20. ULTRAM [Suspect]
     Active Substance: TRAMADOL HYDROCHLORIDE
     Dosage: UNK
  21. PREDNISONE [Suspect]
     Active Substance: PREDNISONE
     Dosage: UNK

REACTIONS (1)
  - No adverse event [Unknown]
